FAERS Safety Report 5949892-5 (Version None)
Quarter: 2008Q4

REPORT INFORMATION
  Report Type: 
  Country: None (occurrence: None)
  Receive Date: 20081112
  Receipt Date: 20081107
  Transmission Date: 20090506
  Serious: Yes (Hospitalization)
  Sender: FDA-Public Use
  Company Number: US-BRISTOL-MYERS SQUIBB COMPANY-14342810

PATIENT
  Age: 57 Year
  Sex: Female
  Weight: 63 kg

DRUGS (3)
  1. KENALOG-40 [Suspect]
     Indication: TRIGGER FINGER
     Dosage: 1 DOSAGEFORM = 40 MG/ML
     Route: 030
     Dates: start: 20080903
  2. ZOLOFT [Concomitant]
     Dates: start: 19960101
  3. VAGIFEM [Concomitant]

REACTIONS (4)
  - APHASIA [None]
  - CHEST DISCOMFORT [None]
  - FEAR OF DEATH [None]
  - PARAESTHESIA [None]
